FAERS Safety Report 19956974 (Version 1)
Quarter: 2021Q4

REPORT INFORMATION
  Report Type: Spontaneous
  Country: CN (occurrence: CN)
  Receive Date: 20211014
  Receipt Date: 20211014
  Transmission Date: 20220303
  Serious: Yes (Other)
  Sender: FDA-Public Use
  Company Number: CN-BAXTER-2021BAX028774

PATIENT
  Age: 42 Year
  Sex: Female
  Weight: 51 kg

DRUGS (5)
  1. CYCLOPHOSPHAMIDE [Suspect]
     Active Substance: CYCLOPHOSPHAMIDE
     Indication: Breast cancer
     Dosage: CYCLOPHOSPHAMIDE INJECTION 0.9G + 0.9% SODIUM CHLORIDE INJECTION 50ML
     Route: 041
     Dates: start: 20210430, end: 20210430
  2. SODIUM CHLORIDE [Suspect]
     Active Substance: SODIUM CHLORIDE
     Indication: Medication dilution
     Dosage: CYCLOPHOSPHAMIDE INJECTION 0.9G + 0.9% SODIUM CHLORIDE INJECTION 50ML
     Route: 041
     Dates: start: 20210430, end: 20210430
  3. SODIUM CHLORIDE [Suspect]
     Active Substance: SODIUM CHLORIDE
     Dosage: EPIRUBICIN HYDROCHLORIDE INJECTION 100MG + STERILE WATER FOR INJECTION 50ML + 0.9% SODIUM CHLORIDE I
     Route: 041
     Dates: start: 20210430, end: 20210430
  4. STERILE WATER FOR INJECTION [Suspect]
     Active Substance: WATER
     Indication: Medication dilution
     Dosage: EPIRUBICIN HYDROCHLORIDE INJECTION 100MG + STERILE WATER FOR INJECTION 50ML + 0.9% SODIUM CHLORIDE I
     Route: 041
     Dates: start: 20210430, end: 20210430
  5. EPIRUBICIN HYDROCHLORIDE [Suspect]
     Active Substance: EPIRUBICIN HYDROCHLORIDE
     Indication: Breast cancer
     Dosage: EPIRUBICIN HYDROCHLORIDE INJECTION 100MG + STERILE WATER FOR INJECTION 50ML + 0.9% SODIUM CHLORIDE I
     Route: 041
     Dates: start: 20210403, end: 20210403

REACTIONS (1)
  - Leukopenia [Recovering/Resolving]

NARRATIVE: CASE EVENT DATE: 20210520
